FAERS Safety Report 10533156 (Version 6)
Quarter: 2016Q1

REPORT INFORMATION
  Report Type: Spontaneous
  Country: FR (occurrence: FR)
  Receive Date: 20141022
  Receipt Date: 20160112
  Transmission Date: 20160525
  Serious: Yes (Life-Threatening)
  Sender: FDA-Public Use
  Company Number: FR-009507513-1410FRA010819

PATIENT
  Age: 78 Year
  Sex: Female
  Weight: 69.7 kg

DRUGS (6)
  1. MONO-TILDIEM [Concomitant]
     Active Substance: DILTIAZEM HYDROCHLORIDE
     Indication: HYPERTENSION
     Dosage: ONE INTAKE DAILY
  2. VITAMIN D [Concomitant]
     Active Substance: CHOLECALCIFEROL
  3. NITROGLYCERIN. [Suspect]
     Active Substance: NITROGLYCERIN
     Dosage: 15 MG, QD(1/DAY)
     Route: 062
  4. SIMVASTATIN. [Concomitant]
     Active Substance: SIMVASTATIN
     Indication: DYSLIPIDAEMIA
     Dosage: ONE INTAKE DAILY
  5. NITROGLYCERIN. [Suspect]
     Active Substance: NITROGLYCERIN
     Indication: ANGINA PECTORIS
     Dosage: 10 MG, QD(1/DAY) FOR ABOUT 15 YEARS
     Route: 062
  6. TANAKAN [Concomitant]
     Active Substance: GINKGO
     Indication: VERTIGO
     Dosage: THREE INTAKES DAILY

REACTIONS (4)
  - Overdose [Unknown]
  - Product packaging issue [Unknown]
  - Neoplasm malignant [Unknown]
  - Tachycardia [Recovered/Resolved]

NARRATIVE: CASE EVENT DATE: 2014
